FAERS Safety Report 6379255-2 (Version None)
Quarter: 2009Q3

REPORT INFORMATION
  Report Type: 
  Country: None (occurrence: None)
  Receive Date: 20090923
  Receipt Date: 20090923
  Transmission Date: 20100115
  Serious: Yes (Life-Threatening, Hospitalization)
  Sender: FDA-Public Use
  Company Number: None

PATIENT

DRUGS (4)
  1. DEPAKOTE [Suspect]
     Indication: BIPOLAR DISORDER
     Dosage: PO
     Route: 048
  2. ABILIFY [Concomitant]
  3. BENADRYL [Concomitant]
  4. PAXIL [Concomitant]

REACTIONS (2)
  - NAUSEA [None]
  - SUICIDE ATTEMPT [None]
